FAERS Safety Report 6750108-0 (Version None)
Quarter: 2010Q2

REPORT INFORMATION
  Report Type: 
  Country: None (occurrence: None)
  Receive Date: 20100601
  Receipt Date: 20100527
  Transmission Date: 20101027
  Serious: Yes (Other)
  Sender: FDA-Public Use
  Company Number: FR-ALLERGAN-1006373US

PATIENT
  Age: 60 Year

DRUGS (2)
  1. BOTOX [Suspect]
     Indication: DRUG USE FOR UNKNOWN INDICATION
  2. BUFLOMEDIL [Concomitant]
     Indication: EPILEPSY

REACTIONS (1)
  - EPILEPSY [None]
